FAERS Safety Report 9186194 (Version 1)
Quarter: 2013Q1

REPORT INFORMATION
  Report Type: Spontaneous
  Country: US (occurrence: None)
  Receive Date: 20120628
  Receipt Date: 20120628
  Transmission Date: 20140127
  Serious: Yes (Disabling, Other)
  Sender: FDA-Public Use
  Company Number: PHHY2011US66361

PATIENT
  Age: 66 Year
  Sex: Female
  Weight: 43.1 kg

DRUGS (3)
  1. RECLAST [Suspect]
     Indication: OSTEOPOROSIS
     Dates: start: 20110519
  2. SYNTHROID (LEVOTHYROXINE SODIUM) [Concomitant]
  3. LEXAPRO (ESCITALOPRAM OXALATE) [Concomitant]

REACTIONS (3)
  - Musculoskeletal pain [None]
  - Arthralgia [None]
  - Diarrhoea [None]
